FAERS Safety Report 6883539-9 (Version None)
Quarter: 2010Q3

REPORT INFORMATION
  Report Type: 
  Country: None (occurrence: None)
  Receive Date: 20100727
  Receipt Date: 20100716
  Transmission Date: 20110219
  Serious: Yes (Other)
  Sender: FDA-Public Use
  Company Number: ACO_01420_2010

PATIENT
  Sex: Female
  Weight: 56.6996 kg

DRUGS (8)
  1. AMPYRA [Suspect]
     Indication: GAIT DISTURBANCE
     Dosage: 10 MG BID ORAL, 0.5 MG QD, HALF TABLET ORAL
     Route: 048
     Dates: start: 20100101
  2. AMPYRA [Suspect]
     Indication: MULTIPLE SCLEROSIS
     Dosage: 10 MG BID ORAL, 0.5 MG QD, HALF TABLET ORAL
     Route: 048
     Dates: start: 20100101
  3. AMPYRA [Suspect]
     Indication: MUSCULAR WEAKNESS
     Dosage: 10 MG BID ORAL, 0.5 MG QD, HALF TABLET ORAL
     Route: 048
     Dates: start: 20100101
  4. AMPYRA [Suspect]
     Indication: GAIT DISTURBANCE
     Dosage: 10 MG BID ORAL, 0.5 MG QD, HALF TABLET ORAL
     Route: 048
     Dates: start: 20100101
  5. AMPYRA [Suspect]
     Indication: MULTIPLE SCLEROSIS
     Dosage: 10 MG BID ORAL, 0.5 MG QD, HALF TABLET ORAL
     Route: 048
     Dates: start: 20100101
  6. AMPYRA [Suspect]
     Indication: MUSCULAR WEAKNESS
     Dosage: 10 MG BID ORAL, 0.5 MG QD, HALF TABLET ORAL
     Route: 048
     Dates: start: 20100101
  7. SYNTHROID [Concomitant]
  8. ZOLOFT [Concomitant]

REACTIONS (3)
  - APHASIA [None]
  - PARAESTHESIA [None]
  - THINKING ABNORMAL [None]
